FAERS Safety Report 4807231-7 (Version None)
Quarter: 2005Q4

REPORT INFORMATION
  Report Type: 
  Country: None (occurrence: None)
  Receive Date: 20051020
  Receipt Date: 20051020
  Transmission Date: 20060501
  Serious: Yes (Hospitalization)
  Sender: FDA-Public Use
  Company Number: None

PATIENT
  Age: 85 Year
  Sex: Male
  Weight: 70.5 kg

DRUGS (9)
  1. PSEUDOEPHEDRINE 60 MG [Suspect]
     Indication: NASAL CONGESTION
     Dosage: 60 MG QID PO
     Route: 048
     Dates: start: 20051008, end: 20051009
  2. ASPIRIN [Concomitant]
  3. GALANTAMINE HYDROBROMIDE [Concomitant]
  4. HCTZ 50/TRIAMTERENE [Concomitant]
  5. MULTI-VITAMIN [Concomitant]
  6. OMEPRAZOLE [Concomitant]
  7. PSEUDOEPHEDRINE HCL [Concomitant]
  8. RISPERIDONE [Concomitant]
  9. SULFAMETHOXAZOLE AND TRIMETHOPRIM DOUBLE STRENGTH [Concomitant]

REACTIONS (4)
  - CONFUSIONAL STATE [None]
  - EYE ROLLING [None]
  - MYOCLONUS [None]
  - TREMOR [None]
